FAERS Safety Report 14413044 (Version 1)
Quarter: 2018Q1

REPORT INFORMATION
  Report Type: Spontaneous
  Country: US (occurrence: US)
  Receive Date: 20180119
  Receipt Date: 20180119
  Transmission Date: 20180509
  Serious: Yes (Hospitalization)
  Sender: FDA-Public Use
  Company Number: None

PATIENT
  Age: 71 Year
  Sex: Male
  Weight: 98.7 kg

DRUGS (12)
  1. PLETAL [Suspect]
     Active Substance: CILOSTAZOL
  2. ZANTAC [Concomitant]
     Active Substance: RANITIDINE HYDROCHLORIDE
  3. AMLODIPINE [Concomitant]
     Active Substance: AMLODIPINE BESYLATE
  4. WARFARIN [Suspect]
     Active Substance: WARFARIN
     Indication: ATRIAL FIBRILLATION
     Route: 048
  5. TRICOR [Concomitant]
     Active Substance: FENOFIBRATE
  6. LOPRESSOR [Concomitant]
     Active Substance: METOPROLOL TARTRATE
  7. LOTENSIN [Concomitant]
     Active Substance: BENAZEPRIL HYDROCHLORIDE
  8. LANOXIN [Concomitant]
     Active Substance: DIGOXIN
  9. PROTONIX [Concomitant]
     Active Substance: PANTOPRAZOLE SODIUM
  10. ASPIRIN 81MG PO DAILY [Suspect]
     Active Substance: ASPIRIN
     Indication: CORONARY ARTERY DISEASE
     Route: 048
  11. BREO ELLIPTA [Concomitant]
     Active Substance: FLUTICASONE FUROATE\VILANTEROL TRIFENATATE
  12. THERAGRAN [Concomitant]
     Active Substance: VITAMINS

REACTIONS (6)
  - Gastrointestinal haemorrhage [None]
  - Acute kidney injury [None]
  - Haemorrhagic anaemia [None]
  - Coagulopathy [None]
  - International normalised ratio increased [None]
  - Therapy cessation [None]

NARRATIVE: CASE EVENT DATE: 20171017
